FAERS Safety Report 22013167 (Version 1)
Quarter: 2023Q1

REPORT INFORMATION
  Report Type: Spontaneous
  Country: DE (occurrence: DE)
  Receive Date: 20230220
  Receipt Date: 20230220
  Transmission Date: 20230417
  Serious: Yes (Life-Threatening, Hospitalization)
  Sender: FDA-Public Use
  Company Number: DE-ADRED-02533-01

PATIENT
  Age: 40 Year
  Sex: Female
  Weight: 55 kg

DRUGS (4)
  1. IBUPROFEN [Suspect]
     Active Substance: IBUPROFEN
     Indication: Product used for unknown indication
     Dosage: 600 MILLIGRAM, BID (600 MG, 2X/D)
     Route: 065
  2. ACETAMINOPHEN\DEXTROMETHORPHAN HYDROBROMIDE\PHENYLPROPANOLAMINE HYDROC [Suspect]
     Active Substance: ACETAMINOPHEN\DEXTROMETHORPHAN HYDROBROMIDE\PHENYLPROPANOLAMINE HYDROCHLORIDE
     Indication: Product used for unknown indication
     Dosage: NK NK, 2X/D
     Route: 065
  3. ACETAMINOPHEN\DEXTROMETHORPHAN HYDROBROMIDE\DOXYLAMINE\EPHEDRINE SULFA [Suspect]
     Active Substance: ACETAMINOPHEN\DEXTROMETHORPHAN HYDROBROMIDE\DOXYLAMINE\EPHEDRINE SULFATE
     Indication: Product used for unknown indication
     Dosage: NK NK, AT NIGHT
     Route: 065
  4. CODEINE [Concomitant]
     Active Substance: CODEINE
     Dosage: 20 GTT DROPS IF NECESSARY
     Route: 065

REACTIONS (3)
  - Jaundice [Unknown]
  - Oedema peripheral [Unknown]
  - Product monitoring error [Unknown]
